FAERS Safety Report 5733689-5 (Version None)
Quarter: 2008Q2

REPORT INFORMATION
  Report Type: 
  Country: None (occurrence: None)
  Receive Date: 20080509
  Receipt Date: 20080325
  Transmission Date: 20081010
  Serious: No
  Sender: FDA-Public Use
  Company Number: A0717347A

PATIENT
  Age: 66 Year
  Sex: Female

DRUGS (3)
  1. ALTABAX [Suspect]
     Dosage: 1APP THREE TIMES PER DAY
     Route: 061
     Dates: start: 20080307, end: 20080308
  2. QUINAPRIL [Concomitant]
  3. VITAMINS [Concomitant]

REACTIONS (3)
  - BURNING SENSATION [None]
  - CRYING [None]
  - PAIN [None]
